FAERS Safety Report 9198049 (Version 2)
Quarter: 2013Q2

REPORT INFORMATION
  Report Type: Spontaneous
  Country: US (occurrence: US)
  Receive Date: 20130328
  Receipt Date: 20130528
  Transmission Date: 20140414
  Serious: Yes (Death)
  Sender: FDA-Public Use
  Company Number: US-B.I. PHARMACEUTICALS,INC./RIDGEFIELD-2013-BI-08361BP

PATIENT
  Age: 46 Year
  Sex: Male

DRUGS (14)
  1. SPIRIVA [Suspect]
     Indication: CHRONIC OBSTRUCTIVE PULMONARY DISEASE
     Dosage: 18 MCG
     Route: 055
  2. METFORMIN HCL [Concomitant]
     Indication: ATRIAL FIBRILLATION
     Dosage: 1000 MG
     Dates: start: 20121012
  3. WARFARIN SODIUM [Concomitant]
     Indication: DIABETIC NEUROPATHY
     Dosage: 5 MG
     Dates: start: 20120612
  4. GABAPENTIN [Concomitant]
     Indication: DIABETIC NEUROPATHY
     Dosage: 1800 MG
  5. NORCO 10-325MG [Concomitant]
     Indication: BACK PAIN
     Dosage: 10-325MG
  6. VALIUM [Concomitant]
     Indication: ANXIETY
     Dosage: DAILY DOSE: 2 TABLET DAILY
  7. TRIAMCINOLONE ACETONIDE [Concomitant]
     Indication: DERMATITIS
     Dosage: STRENGTH: 0.1%, DAILY DOSE: 1 CREAM 80 GRAMS
  8. NEXIUM 20MG [Concomitant]
     Indication: GASTROOESOPHAGEAL REFLUX DISEASE
     Dosage: DAILY DOSE: 1 CAPSULE DR DAILY
  9. VENTOLIN HFA 108 (90 BASE) MCG/ACT [Concomitant]
     Indication: CHRONIC OBSTRUCTIVE PULMONARY DISEASE
     Dosage: 2 PUF
  10. DILTIAZEM HCL [Concomitant]
     Indication: ATRIAL FIBRILLATION
     Dosage: 180 MG
  11. DILTIAZEM HCL [Concomitant]
     Dosage: 120 MG
  12. AMIODARONE HCL [Concomitant]
     Indication: ATRIAL FIBRILLATION
     Dosage: 400 MG
  13. PREDNISONE (PAK) [Concomitant]
     Dosage: 10 MG
     Route: 048
  14. DILTIAZEM CD [Concomitant]
     Dosage: 180 MG
     Route: 048

REACTIONS (1)
  - Death [Fatal]
